FAERS Safety Report 23100389 (Version 1)
Quarter: 2023Q4

REPORT INFORMATION
  Report Type: Spontaneous
  Country: ES (occurrence: None)
  Receive Date: 20231024
  Receipt Date: 20231024
  Transmission Date: 20240109
  Serious: Yes (Hospitalization, Other)
  Sender: FDA-Public Use
  Company Number: 2023A239959

PATIENT
  Age: 13 Year
  Sex: Female

DRUGS (2)
  1. QUETIAPINE [Suspect]
     Active Substance: QUETIAPINE
     Indication: Schizophrenia
     Route: 048
  2. VALPROATE [Concomitant]
     Active Substance: VALPROIC ACID

REACTIONS (2)
  - Suicidal ideation [Unknown]
  - Drug ineffective [Unknown]
